FAERS Safety Report 15201067 (Version 2)
Quarter: 2018Q3

REPORT INFORMATION
  Report Type: Report from Study
  Country: US (occurrence: US)
  Receive Date: 20180726
  Receipt Date: 20180729
  Transmission Date: 20181010
  Serious: Yes (Hospitalization)
  Sender: FDA-Public Use
  Company Number: US-SA-2018SA176345

PATIENT
  Age: 76 Year
  Sex: Female
  Weight: 61 kg

DRUGS (7)
  1. BLINDED JP_INSULIN ASPART [Suspect]
     Active Substance: INSULIN ASPART
     Indication: TYPE 1 DIABETES MELLITUS
     Dosage: UNK UNK, UNK
     Route: 058
     Dates: start: 20170814
  2. BLINDED INSULIN ASPART [Suspect]
     Active Substance: INSULIN ASPART
     Indication: TYPE 1 DIABETES MELLITUS
     Dosage: UNK UNK, UNK
     Route: 058
     Dates: start: 20170814
  3. BLINDED NO STUDY DRUG GIVEN [Suspect]
     Active Substance: INVESTIGATIONAL PRODUCT
     Indication: TYPE 1 DIABETES MELLITUS
     Dosage: UNK UNK, UNK
     Route: 058
     Dates: start: 20170814
  4. DOXYCYCLINE. [Concomitant]
     Active Substance: DOXYCYCLINE
     Dosage: 200 MG, QD
     Route: 048
     Dates: start: 20180612, end: 20180621
  5. BLINDED JP_INSULIN ASPART [Suspect]
     Active Substance: INSULIN ASPART
     Indication: TYPE 1 DIABETES MELLITUS
     Dosage: UNK UNK, UNK
     Route: 058
     Dates: start: 20170814
  6. BLINDED SAR341402 [Suspect]
     Active Substance: INSULIN ASPART
     Indication: TYPE 1 DIABETES MELLITUS
     Dosage: UNK UNK, UNK
     Route: 058
     Dates: start: 20170814
  7. INSULIN GLARGINE [Suspect]
     Active Substance: INSULIN GLARGINE
     Indication: TYPE 1 DIABETES MELLITUS
     Dosage: UNK UNK, UNK
     Route: 058
     Dates: start: 20170814

REACTIONS (1)
  - Pneumothorax spontaneous [Recovered/Resolved]

NARRATIVE: CASE EVENT DATE: 20180625
